FAERS Safety Report 4611181-9 (Version None)
Quarter: 2005Q1

REPORT INFORMATION
  Report Type: 
  Country: None (occurrence: None)
  Receive Date: 20050317
  Receipt Date: 20050203
  Transmission Date: 20050727
  Serious: Yes (Hospitalization)
  Sender: FDA-Public Use
  Company Number: DE-MERCK-0502DEU00043

PATIENT
  Sex: Female

DRUGS (3)
  1. ZOCOR [Suspect]
     Indication: HYPERCHOLESTEROLAEMIA
     Route: 048
     Dates: start: 20040901
  2. ALLOPURINOL [Suspect]
     Route: 048
  3. [THERAPY UNSPECIFIED] [Suspect]
     Route: 048

REACTIONS (1)
  - PSORIASIS [None]
